FAERS Safety Report 22019370 (Version 1)
Quarter: 2023Q1

REPORT INFORMATION
  Report Type: Spontaneous
  Country: US (occurrence: US)
  Receive Date: 20230222
  Receipt Date: 20230222
  Transmission Date: 20230418
  Serious: No
  Sender: FDA-Public Use
  Company Number: US-ZZFDA_PERIODIC-2022AER000033

PATIENT

DRUGS (1)
  1. ZORYVE [Suspect]
     Active Substance: ROFLUMILAST
     Indication: Psoriasis
     Dosage: UNK
     Route: 065

REACTIONS (3)
  - Arthralgia [Unknown]
  - Pruritus [Unknown]
  - Drug ineffective for unapproved indication [Unknown]
